FAERS Safety Report 10424142 (Version 1)
Quarter: 2014Q3

REPORT INFORMATION
  Report Type: Spontaneous
  Country: US (occurrence: None)
  Receive Date: 20140722
  Receipt Date: 20140722
  Transmission Date: 20150326
  Serious: No
  Sender: FDA-Public Use
  Company Number: AEGR000447

PATIENT
  Sex: Male

DRUGS (1)
  1. JUXTAPID [Suspect]
     Active Substance: LOMITAPIDE MESYLATE
     Indication: TYPE IIA HYPERLIPIDAEMIA
     Route: 048
     Dates: start: 20140407

REACTIONS (4)
  - Gastrointestinal sounds abnormal [None]
  - Nausea [None]
  - Weight decreased [None]
  - Dyspepsia [None]

NARRATIVE: CASE EVENT DATE: 201404
